FAERS Safety Report 9783190 (Version 2)
Quarter: 2013Q4

REPORT INFORMATION
  Report Type: Report from Study
  Country: CA (occurrence: CA)
  Receive Date: 20131226
  Receipt Date: 20131226
  Transmission Date: 20140711
  Serious: Yes (Hospitalization)
  Sender: FDA-Public Use
  Company Number: CA-ASTRAZENECA-2012SE69333

PATIENT
  Age: 24261 Day
  Sex: Male

DRUGS (15)
  1. STUDY PROCEDURE [Suspect]
     Indication: CORONARY ARTERY DISEASE
     Route: 065
  2. AZD6140 [Suspect]
     Indication: CORONARY ARTERY DISEASE
     Route: 048
     Dates: start: 20120522, end: 20120822
  3. AZD6140 [Suspect]
     Indication: CORONARY ARTERY DISEASE
     Route: 048
     Dates: start: 20120911, end: 20121029
  4. AZD6140 [Suspect]
     Indication: CORONARY ARTERY DISEASE
     Route: 048
     Dates: start: 20121115, end: 20121212
  5. AZD6140 [Suspect]
     Indication: CORONARY ARTERY DISEASE
     Route: 048
     Dates: start: 20130214
  6. ASA [Suspect]
     Route: 048
     Dates: end: 20120822
  7. ASA [Suspect]
     Route: 048
     Dates: start: 20120911, end: 20121029
  8. ASA [Suspect]
     Route: 048
     Dates: start: 20121111
  9. RAMIPRIL [Concomitant]
     Indication: HYPERTENSION
     Route: 048
  10. NITRO [Concomitant]
     Indication: CHEST PAIN
     Route: 060
  11. SANDOZ TAMSULOSIN [Concomitant]
     Indication: BENIGN PROSTATIC HYPERPLASIA
     Route: 048
  12. CRESTOR [Concomitant]
     Indication: DYSLIPIDAEMIA
     Route: 048
  13. PANTOPRAZOLE [Concomitant]
     Indication: GASTRITIS PROPHYLAXIS
     Route: 048
  14. METFORMIN [Concomitant]
     Indication: TYPE 2 DIABETES MELLITUS
     Route: 048
  15. AVAMYS [Concomitant]
     Indication: RHINITIS
     Route: 045

REACTIONS (1)
  - Transitional cell carcinoma [Recovered/Resolved]
